FAERS Safety Report 7229610-3 (Version None)
Quarter: 2011Q1

REPORT INFORMATION
  Report Type: 
  Country: None (occurrence: None)
  Receive Date: 20110117
  Receipt Date: 20110110
  Transmission Date: 20110831
  Serious: No
  Sender: FDA-Public Use
  Company Number: US-JNJFOC-20110103040

PATIENT
  Sex: Male
  Weight: 90.72 kg

DRUGS (6)
  1. FENTANYL-100 [Suspect]
     Indication: MUSCULOSKELETAL PAIN
     Route: 062
  2. HYDROCODONE [Concomitant]
     Indication: PAIN
     Route: 048
  3. FENTANYL CITRATE [Suspect]
     Indication: ILL-DEFINED DISORDER
     Route: 062
  4. FENTANYL-100 [Suspect]
     Indication: BACK PAIN
     Route: 062
  5. LIPITOR [Concomitant]
     Indication: BLOOD CHOLESTEROL INCREASED
     Dosage: DAILY
     Route: 048
  6. FENTANYL-100 [Suspect]
     Indication: NECK PAIN
     Route: 062

REACTIONS (9)
  - DRUG DOSE OMISSION [None]
  - PSYCHOMOTOR HYPERACTIVITY [None]
  - OVERDOSE [None]
  - DYSPNOEA [None]
  - WRONG TECHNIQUE IN DRUG USAGE PROCESS [None]
  - MALAISE [None]
  - HYPERHIDROSIS [None]
  - ABDOMINAL DISCOMFORT [None]
  - PRODUCT QUALITY ISSUE [None]
